FAERS Safety Report 7718211-6 (Version None)
Quarter: 2011Q3

REPORT INFORMATION
  Report Type: 
  Country: None (occurrence: None)
  Receive Date: 20110830
  Receipt Date: 20110819
  Transmission Date: 20111222
  Serious: Yes (Other)
  Sender: FDA-Public Use
  Company Number: PHEH2011US02103

PATIENT
  Sex: Male

DRUGS (3)
  1. FOCALIN [Suspect]
     Dosage: 20 MG, QD
     Route: 048
  2. GUANFACINE HYDROCHLORIDE [Concomitant]
     Dosage: 1 MG, BID
  3. POLYETHYLENE GLYCOL [Concomitant]
     Dosage: UNK UKN, UNK

REACTIONS (4)
  - MYDRIASIS [None]
  - TREMOR [None]
  - DRUG INEFFECTIVE [None]
  - WITHDRAWAL SYNDROME [None]
